FAERS Safety Report 5734725-2 (Version None)
Quarter: 2008Q2

REPORT INFORMATION
  Report Type: 
  Country: None (occurrence: None)
  Receive Date: 20080508
  Receipt Date: 20080508
  Transmission Date: 20081010
  Serious: No
  Sender: FDA-Public Use
  Company Number: None

PATIENT
  Age: 56 Year
  Sex: Female

DRUGS (1)
  1. CREST PRO-HEALTH RINSE UNKNOWN PROCTOR AND GAMBLE [Suspect]
     Dosage: MOUTHFUL TWICE DAILY PO  (DURATION: YEAR AND A H ALF)
     Route: 048
     Dates: start: 20070101, end: 20080507

REACTIONS (2)
  - PHARMACEUTICAL PRODUCT COMPLAINT [None]
  - TOOTH DISCOLOURATION [None]
